FAERS Safety Report 12926034 (Version 1)
Quarter: 2016Q4

REPORT INFORMATION
  Report Type: Spontaneous
  Country: US (occurrence: US)
  Receive Date: 20161108
  Receipt Date: 20161108
  Transmission Date: 20170207
  Serious: No
  Sender: FDA-Public Use
  Company Number: US-SA-2016SA183382

PATIENT
  Age: 86 Year
  Sex: Female

DRUGS (2)
  1. PRALUENT [Suspect]
     Active Substance: ALIROCUMAB
     Indication: HYPERLIPIDAEMIA
     Route: 065
     Dates: start: 20160927
  2. ALIROCUMAB PREFILLED PEN [Concomitant]
     Active Substance: ALIROCUMAB
     Indication: HYPERLIPIDAEMIA
     Dates: start: 20160927

REACTIONS (8)
  - Headache [Unknown]
  - Asthenia [Unknown]
  - Hypertension [Recovering/Resolving]
  - Hallucination [Unknown]
  - Feeling abnormal [Unknown]
  - Chills [Unknown]
  - Vomiting [Unknown]
  - Food intolerance [Unknown]

NARRATIVE: CASE EVENT DATE: 20160927
